FAERS Safety Report 9995910 (Version 1)
Quarter: 2014Q1

REPORT INFORMATION
  Report Type: Spontaneous
  Country: US (occurrence: None)
  Receive Date: 20140310
  Receipt Date: 20140310
  Transmission Date: 20141002
  Serious: Yes (Life-Threatening, Other)
  Sender: FDA-Public Use
  Company Number: None

PATIENT
  Age: 29 Year
  Sex: Male
  Weight: 115.9 kg

DRUGS (2)
  1. PIPERACILLIN/TAZOBACTAM [Suspect]
     Indication: DEVICE RELATED INFECTION
     Route: 042
     Dates: start: 20131205, end: 20131207
  2. VANCOMYCIN [Suspect]
     Indication: DEVICE RELATED INFECTION
     Route: 042
     Dates: start: 20131204, end: 20131215

REACTIONS (3)
  - Tubulointerstitial nephritis [None]
  - Renal failure acute [None]
  - Eosinophilia [None]
